FAERS Safety Report 21000423 (Version 2)
Quarter: 2022Q2

REPORT INFORMATION
  Report Type: Report from Study
  Country: CA (occurrence: CA)
  Receive Date: 20220623
  Receipt Date: 20220629
  Transmission Date: 20220720
  Serious: Yes (Hospitalization)
  Sender: FDA-Public Use
  Company Number: CA-PFIZER INC-PV202200003969

PATIENT
  Age: 76 Year
  Sex: Female
  Weight: 75.4 kg

DRUGS (5)
  1. PALBOCICLIB [Suspect]
     Active Substance: PALBOCICLIB
     Indication: Breast cancer
     Dosage: 125 MG, ONCE DAILY
     Route: 048
     Dates: start: 20181207, end: 20181228
  2. PALBOCICLIB [Suspect]
     Active Substance: PALBOCICLIB
     Dosage: 100 MG, ONCE DAILY
     Route: 048
     Dates: start: 20200104, end: 20210323
  3. PALBOCICLIB [Suspect]
     Active Substance: PALBOCICLIB
     Dosage: 75 MG, ONCE DAILY
     Route: 048
     Dates: start: 20220324
  4. NITROGLYCERIN [Suspect]
     Active Substance: NITROGLYCERIN
     Dosage: UNK
  5. TICAGRELOR [Suspect]
     Active Substance: TICAGRELOR
     Dosage: UNK

REACTIONS (1)
  - Dehydration [Recovered/Resolved]

NARRATIVE: CASE EVENT DATE: 20220614
